FAERS Safety Report 20089459 (Version 1)
Quarter: 2021Q4

REPORT INFORMATION
  Report Type: Report from Study
  Country: US (occurrence: US)
  Receive Date: 20211119
  Receipt Date: 20211119
  Transmission Date: 20220303
  Serious: Yes (Hospitalization, Other)
  Sender: FDA-Public Use
  Company Number: US-NOVARTISPH-NVSC2021US259462

PATIENT
  Sex: Male

DRUGS (1)
  1. ENTRESTO [Suspect]
     Active Substance: SACUBITRIL\VALSARTAN
     Indication: Product used for unknown indication
     Dosage: UNK UNK, BID
     Route: 048
     Dates: start: 20210809

REACTIONS (6)
  - Fluid retention [Not Recovered/Not Resolved]
  - Dyspnoea [Not Recovered/Not Resolved]
  - Micturition urgency [Not Recovered/Not Resolved]
  - Speech disorder [Not Recovered/Not Resolved]
  - Swelling [Not Recovered/Not Resolved]
  - Drug ineffective [Not Recovered/Not Resolved]
